FAERS Safety Report 8874792 (Version 3)
Quarter: 2014Q2

REPORT INFORMATION
  Report Type: Spontaneous
  Country: US (occurrence: US)
  Receive Date: 20121023
  Receipt Date: 20131024
  Transmission Date: 20141212
  Serious: No
  Sender: FDA-Public Use
  Company Number: US-PFIZER INC-2012259846

PATIENT
  Age: 70 Year
  Sex: Female
  Weight: 63.49 kg

DRUGS (2)
  1. PREMPRO [Suspect]
     Indication: HOT FLUSH
     Dosage: UNK
     Route: 048
  2. PREMPRO [Suspect]
     Dosage: 0.3/1.5 MG, UNK
     Route: 048

REACTIONS (3)
  - Hot flush [Recovering/Resolving]
  - Nasopharyngitis [Recovered/Resolved]
  - Chills [Unknown]
